FAERS Safety Report 11092136 (Version 1)
Quarter: 2015Q2

REPORT INFORMATION
  Report Type: Spontaneous
  Country: US (occurrence: US)
  Receive Date: 20150505
  Receipt Date: 20150505
  Transmission Date: 20150821
  Serious: Yes (Hospitalization, Other)
  Sender: FDA-Public Use
  Company Number: US-AMGEN-USASP2015043331

PATIENT
  Age: 68 Year
  Sex: Male

DRUGS (1)
  1. ENBREL [Suspect]
     Active Substance: ETANERCEPT
     Indication: RHEUMATOID ARTHRITIS
     Dosage: 25 MG, 2 TIMES/WK
     Route: 065
     Dates: start: 19991101

REACTIONS (5)
  - Chondropathy [Recovered/Resolved]
  - Joint lock [Recovered/Resolved]
  - Joint destruction [Recovered/Resolved]
  - Arthritis [Recovered/Resolved]
  - Joint crepitation [Recovered/Resolved]
